FAERS Safety Report 19270228 (Version 3)
Quarter: 2021Q4

REPORT INFORMATION
  Report Type: Spontaneous
  Country: AR (occurrence: AR)
  Receive Date: 20210518
  Receipt Date: 20211213
  Transmission Date: 20220303
  Serious: Yes (Other)
  Sender: FDA-Public Use
  Company Number: AR-PFIZER INC-2021507459

PATIENT
  Age: 75 Year
  Sex: Male

DRUGS (1)
  1. XELJANZ [Suspect]
     Active Substance: TOFACITINIB CITRATE
     Indication: Rheumatoid arthritis
     Dosage: 5 MG, 2X/DAY
     Dates: start: 20200313

REACTIONS (12)
  - Bone cancer [Unknown]
  - Rheumatoid arthritis [Unknown]
  - Lung disorder [Unknown]
  - Cardiac disorder [Unknown]
  - Pain [Unknown]
  - COVID-19 [Unknown]
  - Dyspnoea [Unknown]
  - Joint dislocation [Unknown]
  - Gait disturbance [Unknown]
  - Joint swelling [Unknown]
  - Arthralgia [Unknown]
  - Arthralgia [Unknown]

NARRATIVE: CASE EVENT DATE: 20210719
